FAERS Safety Report 10880684 (Version 1)
Quarter: 2015Q1

REPORT INFORMATION
  Report Type: Spontaneous
  Country: US (occurrence: None)
  Receive Date: 20150225
  Receipt Date: 20150225
  Transmission Date: 20150721
  Serious: No
  Sender: FDA-Public Use
  Company Number: None

PATIENT

DRUGS (5)
  1. PROPARACAINE [Suspect]
     Active Substance: PROPARACAINE
     Dates: start: 20150109
  2. ZYMAXID [Suspect]
     Active Substance: GATIFLOXACIN
     Dates: start: 20150109
  3. RESTASIS [Suspect]
     Active Substance: CYCLOSPORINE
     Dates: start: 20150109
  4. ARTIFICIAL TEARS [Suspect]
     Active Substance: GLYCERIN\HYPROMELLOSES\POLYETHYLENE GLYCOL 400
     Dates: start: 20150109
  5. CIPROFLOXACIN. [Suspect]
     Active Substance: CIPROFLOXACIN
     Dates: start: 20150109

REACTIONS (3)
  - Post procedural infection [None]
  - Mycobacterium chelonae infection [None]
  - Product quality issue [None]
